FAERS Safety Report 4422100-2 (Version None)
Quarter: 2004Q3

REPORT INFORMATION
  Report Type: 
  Country: None (occurrence: None)
  Receive Date: 20040806
  Receipt Date: 20040729
  Transmission Date: 20050211
  Serious: Yes (Other)
  Sender: FDA-Public Use
  Company Number: 2004226087US

PATIENT
  Sex: Female

DRUGS (2)
  1. PROVERA [Suspect]
  2. PREMARIN [Suspect]

REACTIONS (1)
  - OVARIAN CANCER [None]
